FAERS Safety Report 4832090-6 (Version None)
Quarter: 2005Q4

REPORT INFORMATION
  Report Type: 
  Country: None (occurrence: None)
  Receive Date: 20051116
  Receipt Date: 20051107
  Transmission Date: 20060501
  Serious: Yes (Death)
  Sender: FDA-Public Use
  Company Number: 2005-11-0394

PATIENT
  Age: 89 Year
  Sex: Female

DRUGS (8)
  1. ALBUTEROL SULFATE HFA [Suspect]
     Dosage: 100 MCG/PUFF ORAL AER IN
     Route: 055
  2. SPIRIVA [Suspect]
     Dosage: 18MCG QID
  3. OXYGEN [Suspect]
  4. LACTULOSE [Suspect]
     Dosage: 300ML BID
  5. CO-CODAMOL [Suspect]
     Dosage: 2 QID PRN
  6. CO-AMILOFRUSE [Suspect]
     Dosage: 1 QD
  7. CALCICHEW D3 (CALCIUM CARBONATE/CHOLECALCIFEROL) [Suspect]
     Dosage: 1 QD
  8. SERETIDE (SALMETEROL XINAFOATE/FLUTICASONE PROPIONAT [Suspect]
     Dosage: 2 PUFFS BID

REACTIONS (1)
  - EMPHYSEMA [None]
